FAERS Safety Report 10388174 (Version 1)
Quarter: 2014Q3

REPORT INFORMATION
  Report Type: Spontaneous
  Country: US (occurrence: US)
  Receive Date: 20140815
  Receipt Date: 20140815
  Transmission Date: 20150326
  Serious: Yes (Hospitalization)
  Sender: FDA-Public Use
  Company Number: US-GLAXOSMITHKLINE-A1084358A

PATIENT
  Age: 61 Year
  Sex: Male

DRUGS (10)
  1. CRESTOR [Concomitant]
     Active Substance: ROSUVASTATIN CALCIUM
  2. BUSPAR [Concomitant]
     Active Substance: BUSPIRONE HYDROCHLORIDE
  3. ADVAIR HFA [Suspect]
     Active Substance: FLUTICASONE PROPIONATE\SALMETEROL XINAFOATE
     Indication: CHRONIC OBSTRUCTIVE PULMONARY DISEASE
     Dosage: 1PUFF TWICE PER DAY
     Route: 055
  4. NITROGLYCERIN. [Concomitant]
     Active Substance: NITROGLYCERIN
  5. TRAZODONE [Concomitant]
     Active Substance: TRAZODONE HYDROCHLORIDE
  6. VITAMINS [Concomitant]
     Active Substance: VITAMINS
  7. ANTI-ANXIETY MED- NAME UNKNOWN [Concomitant]
  8. CYMBALTA [Concomitant]
     Active Substance: DULOXETINE HYDROCHLORIDE
  9. CPAP MACHINE [Concomitant]
  10. ANTIDEPRESSANTS [Concomitant]
     Active Substance: UNSPECIFIED INGREDIENT

REACTIONS (11)
  - Coronary arterial stent insertion [Unknown]
  - Cough [Unknown]
  - Stent placement [Unknown]
  - Surgery [Unknown]
  - Drug interaction [Unknown]
  - Intracranial aneurysm [Unknown]
  - Struck by lightning [Unknown]
  - Angina pectoris [Unknown]
  - Dyspnoea [Unknown]
  - Overdose [Unknown]
  - Amnesia [Unknown]
